FAERS Safety Report 13246762 (Version 1)
Quarter: 2017Q1

REPORT INFORMATION
  Report Type: Spontaneous
  Country: US (occurrence: US)
  Receive Date: 20170217
  Receipt Date: 20170217
  Transmission Date: 20170428
  Serious: No
  Sender: FDA-Public Use
  Company Number: US-LUNDBECK-DKLU2025559

PATIENT
  Age: 11 Year
  Sex: Male

DRUGS (2)
  1. SABRIL [Suspect]
     Active Substance: VIGABATRIN
     Indication: INFANTILE SPASMS
     Route: 048
     Dates: start: 20161209, end: 20170101
  2. SABRIL [Suspect]
     Active Substance: VIGABATRIN
     Indication: HYPOXIC-ISCHAEMIC ENCEPHALOPATHY
     Route: 048
     Dates: start: 20170101

REACTIONS (1)
  - Heart rate increased [Recovered/Resolved]

NARRATIVE: CASE EVENT DATE: 20170101
